FAERS Safety Report 5032117-5 (Version None)
Quarter: 2006Q2

REPORT INFORMATION
  Report Type: 
  Country: None (occurrence: None)
  Receive Date: 20060619
  Receipt Date: 20060608
  Transmission Date: 20061013
  Serious: Yes (Death)
  Sender: FDA-Public Use
  Company Number: 163-20785-06060305

PATIENT
  Age: 24 Year
  Sex: Male

DRUGS (1)
  1. THALOMID [Suspect]
     Indication: MULTIPLE MYELOMA
     Dosage: 400 MG QD ORAL
     Route: 048
     Dates: start: 20060119

REACTIONS (1)
  - MULTI-ORGAN FAILURE [None]
